FAERS Safety Report 5701940-3 (Version None)
Quarter: 2008Q2

REPORT INFORMATION
  Report Type: 
  Country: None (occurrence: None)
  Receive Date: 20080411
  Receipt Date: 20080407
  Transmission Date: 20081010
  Serious: Yes (Death)
  Sender: FDA-Public Use
  Company Number: PHHY2008BR04709

PATIENT
  Age: 14 Year
  Sex: Male

DRUGS (1)
  1. CATAFLAM [Suspect]
     Indication: SKIN FISSURES

REACTIONS (4)
  - CARDIO-RESPIRATORY ARREST [None]
  - DENGUE FEVER [None]
  - PAIN [None]
  - SHOCK [None]
